FAERS Safety Report 8009305-9 (Version None)
Quarter: 2011Q4

REPORT INFORMATION
  Report Type: 
  Country: None (occurrence: None)
  Receive Date: 20111227
  Receipt Date: 20111220
  Transmission Date: 20120403
  Serious: Yes (Death)
  Sender: FDA-Public Use
  Company Number: US-MPIJNJ-2011-06011

PATIENT
  Sex: Male
  Weight: 125.7 kg

DRUGS (4)
  1. PROCRIT                            /00909301/ [Concomitant]
     Indication: ANAEMIA
     Dosage: 60000 IU, 1/WEEK
     Route: 058
     Dates: start: 20111003, end: 20111114
  2. VELCADE [Suspect]
     Indication: MULTIPLE MYELOMA
     Dosage: 1 MG/M2, CYCLIC
     Route: 042
     Dates: start: 20110711, end: 20111114
  3. DEXAMETHASONE [Suspect]
     Indication: MULTIPLE MYELOMA
     Dosage: 40 MG, CYCLIC
     Dates: start: 20110711, end: 20111114
  4. REVLIMID [Suspect]
     Indication: MULTIPLE MYELOMA
     Dosage: 15 MG, CYCLIC
     Route: 048
     Dates: start: 20110907, end: 20111114

REACTIONS (1)
  - DISEASE PROGRESSION [None]
